FAERS Safety Report 5630981-X (Version None)
Quarter: 2008Q1

REPORT INFORMATION
  Report Type: 
  Country: None (occurrence: None)
  Receive Date: 20080219
  Receipt Date: 20080211
  Transmission Date: 20080703
  Serious: Yes (Hospitalization)
  Sender: FDA-Public Use
  Company Number: US-PFIZER INC-2008012561

PATIENT
  Sex: Male
  Weight: 92 kg

DRUGS (13)
  1. SUTENT [Suspect]
     Indication: COLON CANCER METASTATIC
     Route: 048
     Dates: start: 20070309, end: 20070315
  2. IRINOTECAN HCL [Suspect]
     Indication: COLON CANCER METASTATIC
     Route: 042
  3. CETUXIMAB [Suspect]
     Indication: COLON CANCER METASTATIC
     Route: 042
  4. CETUXIMAB [Suspect]
     Route: 042
  5. OMEPRAZOLE [Concomitant]
  6. ZOFRAN [Concomitant]
  7. REGLAN [Concomitant]
     Dosage: FREQ:PRN
  8. ATIVAN [Concomitant]
  9. LEXAPRO [Concomitant]
  10. COLACE [Concomitant]
  11. SENNA [Concomitant]
  12. OXYCONTIN [Concomitant]
  13. OXYCODONE HCL [Concomitant]
     Dosage: TEXT:5-10MG

REACTIONS (4)
  - ABDOMINAL PAIN [None]
  - CONSTIPATION [None]
  - INTESTINAL OBSTRUCTION [None]
  - NAUSEA [None]
